FAERS Safety Report 16744767 (Version 1)
Quarter: 2019Q3

REPORT INFORMATION
  Report Type: Spontaneous
  Country: NL (occurrence: NL)
  Receive Date: 20190827
  Receipt Date: 20190827
  Transmission Date: 20191005
  Serious: Yes (Hospitalization)
  Sender: FDA-Public Use
  Company Number: NL-NAPPMUNDI-GBR-2019-0069399

PATIENT
  Age: 69 Year
  Sex: Female
  Weight: 82 kg

DRUGS (10)
  1. HYDROCHLOORTHIAZIDE [Concomitant]
     Active Substance: HYDROCHLOROTHIAZIDE
     Dosage: 12 MG, DAILY [1DD1]
  2. BISACODYL. [Concomitant]
     Active Substance: BISACODYL
     Dosage: 10 MG, DAILY [1DD10MG]
  3. LEVOTHYROXINE. [Concomitant]
     Active Substance: LEVOTHYROXINE
     Dosage: 50 MCG, DAILY [1DD1]
  4. OXYCODONE HYDROCHLORIDE. [Suspect]
     Active Substance: OXYCODONE HYDROCHLORIDE
     Indication: HERPES ZOSTER
     Dosage: 5 MG, Q12H [2DD5MG] (STRENGHT 5MG)
     Route: 065
     Dates: start: 20190719, end: 20190720
  5. CORTIMENT                          /00028604/ [Concomitant]
     Dosage: 9 MG, DAILY [1DD1]
  6. PICOPREP [Concomitant]
     Active Substance: ANHYDROUS CITRIC ACID\MAGNESIUM OXIDE\SODIUM PICOSULFATE
     Dosage: 16 G, DAILY [1DD1]
  7. COLECALCIFEROL [Concomitant]
     Active Substance: CHOLECALCIFEROL
     Dosage: 800 IU, DAILY [1DD1]
  8. VALACICLOVIR [Suspect]
     Active Substance: VALACYCLOVIR HYDROCHLORIDE
     Indication: HERPES ZOSTER
     Dosage: 1000 MG, Q8H [3DD1000MG]
     Route: 065
     Dates: start: 20190719, end: 20190720
  9. LISINOPRIL. [Concomitant]
     Active Substance: LISINOPRIL
     Dosage: 1DD1
  10. URSODEOXYCHOLZUUR [Concomitant]
     Dosage: 250 MG, DAILY [1DD1]

REACTIONS (5)
  - Swollen tongue [Recovering/Resolving]
  - Dyspnoea [Recovering/Resolving]
  - Pharyngeal swelling [Recovering/Resolving]
  - Swelling [Recovering/Resolving]
  - Pruritus [Recovering/Resolving]

NARRATIVE: CASE EVENT DATE: 20190719
